FAERS Safety Report 4677465-3 (Version None)
Quarter: 2005Q2

REPORT INFORMATION
  Report Type: 
  Country: None (occurrence: None)
  Receive Date: 20050531
  Receipt Date: 20050519
  Transmission Date: 20051028
  Serious: Yes (Other)
  Sender: FDA-Public Use
  Company Number: 200514575GDDC

PATIENT
  Age: 58 Year
  Sex: Male

DRUGS (6)
  1. LEFLUNOMIDE [Suspect]
     Indication: PSORIATIC ARTHROPATHY
     Route: 048
     Dates: start: 20041029, end: 20050512
  2. METHOTREXATE [Suspect]
     Indication: PSORIATIC ARTHROPATHY
     Route: 048
     Dates: start: 20050101, end: 20050420
  3. MELOXICAM [Concomitant]
     Indication: PSORIATIC ARTHROPATHY
     Dates: start: 20050101, end: 20050401
  4. SIMVASTATIN [Concomitant]
     Indication: MYOCARDIAL INFARCTION
     Dates: start: 19980101
  5. ATENOLOL [Concomitant]
     Indication: MYOCARDIAL INFARCTION
     Dates: start: 19980101
  6. ASPIRIN [Concomitant]
     Indication: MYOCARDIAL INFARCTION
     Dates: start: 19980101

REACTIONS (4)
  - ALANINE AMINOTRANSFERASE INCREASED [None]
  - BLOOD ALKALINE PHOSPHATASE INCREASED [None]
  - JAUNDICE [None]
  - LIVER FUNCTION TEST ABNORMAL [None]
